FAERS Safety Report 5813571-5 (Version None)
Quarter: 2008Q3

REPORT INFORMATION
  Report Type: 
  Country: None (occurrence: None)
  Receive Date: 20080717
  Receipt Date: 20080714
  Transmission Date: 20090109
  Serious: Yes (Life-Threatening)
  Sender: FDA-Public Use
  Company Number: JP-BRISTOL-MYERS SQUIBB COMPANY-14221147

PATIENT
  Age: 44 Year
  Sex: Female

DRUGS (2)
  1. TAXOL [Suspect]
     Indication: GASTRIC CANCER
     Dosage: THERAPY STARTED ON 12-OCT-2006.
     Route: 041
     Dates: start: 20071220, end: 20071220
  2. TAXOL [Suspect]
     Indication: PERITONEAL CARCINOMA
     Dosage: THERAPY STARTED ON 12-OCT-2006.
     Route: 041
     Dates: start: 20071220, end: 20071220

REACTIONS (1)
  - LYMPHOMA [None]
